FAERS Safety Report 8603525-8 (Version None)
Quarter: 2012Q3

REPORT INFORMATION
  Report Type: 
  Country: None (occurrence: None)
  Receive Date: 20120817
  Receipt Date: 20120813
  Transmission Date: 20120928
  Serious: Yes (Death)
  Sender: FDA-Public Use
  Company Number: US-PFIZER INC-2012197774

PATIENT
  Age: 83 Year
  Sex: Male
  Weight: 69.841 kg

DRUGS (8)
  1. FUROSEMIDE [Concomitant]
     Indication: OEDEMA
     Dosage: 40 MG, 1X/DAY
  2. BROVANA [Concomitant]
     Indication: CHRONIC OBSTRUCTIVE PULMONARY DISEASE
     Dosage: UNK, 2X/DAY
  3. BUDESONIDE [Concomitant]
     Indication: CHRONIC OBSTRUCTIVE PULMONARY DISEASE
     Dosage: UNK, 2X/DAY
  4. SINGULAIR [Concomitant]
     Indication: CHRONIC OBSTRUCTIVE PULMONARY DISEASE
     Dosage: 10 MG, 1X/DAY
  5. HYDROCODONE BITARTRATE AND IBUPROFEN [Concomitant]
     Indication: PAIN
     Dosage: 7.5/200 MG, 2X/DAY
     Route: 048
  6. COUMADIN [Concomitant]
     Dosage: UNK
  7. REVATIO [Suspect]
     Indication: PULMONARY HYPERTENSION
     Dosage: 20 MG, 3X/DAY
     Route: 048
  8. BUPROPION [Concomitant]
     Indication: ANXIETY
     Dosage: 300 MG, 1X/DAY

REACTIONS (1)
  - DEATH [None]
